FAERS Safety Report 7895248-8 (Version None)
Quarter: 2011Q4

REPORT INFORMATION
  Report Type: 
  Country: None (occurrence: None)
  Receive Date: 20111102
  Receipt Date: 20111021
  Transmission Date: 20120403
  Serious: Yes (Life-Threatening, Hospitalization)
  Sender: FDA-Public Use
  Company Number: NSR_00299_2011

PATIENT
  Age: 30 Year
  Sex: Male

DRUGS (5)
  1. ETHANOL [Suspect]
     Indication: PRODUCT USED FOR UNKNOWN INDICATION
     Dosage: (DF);
  2. EFAVIRENZ [Concomitant]
  3. TENOFOVIR DISOPROXIL FUMARATE [Concomitant]
  4. EMTRICITABINE [Concomitant]
  5. IBUPROFEN [Suspect]
     Indication: PRODUCT USED FOR UNKNOWN INDICATION
     Dosage: (96 G, (10066 MG/KG))

REACTIONS (7)
  - CIRCULATORY COLLAPSE [None]
  - BLOOD ALCOHOL INCREASED [None]
  - RENAL FAILURE [None]
  - METABOLIC ACIDOSIS [None]
  - SHOCK [None]
  - POLYURIA [None]
  - COMA [None]
